FAERS Safety Report 4869212-7 (Version None)
Quarter: 2005Q4

REPORT INFORMATION
  Report Type: 
  Country: None (occurrence: None)
  Receive Date: 20051230
  Receipt Date: 20051130
  Transmission Date: 20060501
  Serious: Yes (Hospitalization)
  Sender: FDA-Public Use
  Company Number: PHBS2005JP17650

PATIENT
  Age: 66 Year
  Sex: Female

DRUGS (2)
  1. FASTIC [Suspect]
     Indication: DIABETES MELLITUS
     Dosage: 270 MG/DAY
     Route: 048
     Dates: start: 20020701, end: 20020810
  2. DAONIL [Concomitant]
     Indication: BILE DUCT STENOSIS
     Dosage: 3.75 MG/DAY
     Dates: start: 20020715, end: 20050810

REACTIONS (1)
  - INTERSTITIAL LUNG DISEASE [None]
